FAERS Safety Report 11209372 (Version 5)
Quarter: 2016Q1

REPORT INFORMATION
  Report Type: Spontaneous
  Country: US (occurrence: US)
  Receive Date: 20150622
  Receipt Date: 20160212
  Transmission Date: 20160525
  Serious: Yes (Hospitalization, Other)
  Sender: FDA-Public Use
  Company Number: US-GLAXOSMITHKLINE-US2015084778

PATIENT
  Age: 65 Year
  Sex: Female

DRUGS (10)
  1. CARVEDILOL. [Concomitant]
     Active Substance: CARVEDILOL
     Dosage: UNK
  2. CELEXA [Concomitant]
     Active Substance: CITALOPRAM HYDROBROMIDE
     Dosage: UNK
  3. VENTOLIN HFA [Concomitant]
     Active Substance: ALBUTEROL SULFATE
     Dosage: UNK
  4. ADVAIR DISKUS [Suspect]
     Active Substance: FLUTICASONE PROPIONATE\SALMETEROL XINAFOATE
     Dosage: UNK UNK, U
     Dates: start: 2002
  5. ADVAIR DISKUS [Suspect]
     Active Substance: FLUTICASONE PROPIONATE\SALMETEROL XINAFOATE
     Indication: ASTHMA
     Dosage: 1 PUFF(S), BID
     Route: 055
     Dates: start: 200106
  6. NASONEX [Concomitant]
     Active Substance: MOMETASONE FUROATE
     Dosage: UNK
  7. ESTRADIOL. [Concomitant]
     Active Substance: ESTRADIOL
     Dosage: UNK
  8. SINGULAIR [Concomitant]
     Active Substance: MONTELUKAST SODIUM
     Dosage: UNK
  9. XANAX [Concomitant]
     Active Substance: ALPRAZOLAM
     Dosage: UNK
  10. GABAPENTIN. [Concomitant]
     Active Substance: GABAPENTIN
     Dosage: UNK

REACTIONS (19)
  - Spinal fracture [Unknown]
  - Upper limb fracture [Unknown]
  - Fall [Unknown]
  - Concussion [Unknown]
  - Syncope [Unknown]
  - Hysterectomy [Recovered/Resolved]
  - Oral fungal infection [Recovered/Resolved]
  - Limb injury [Unknown]
  - Spinal fusion surgery [Unknown]
  - Dysphonia [Not Recovered/Not Resolved]
  - Laryngitis [Recovered/Resolved]
  - Accident [Unknown]
  - Influenza [Recovered/Resolved]
  - Oropharyngeal candidiasis [Not Recovered/Not Resolved]
  - Limb operation [Unknown]
  - Intestinal obstruction [Recovered/Resolved]
  - Bladder neck suspension [Recovered/Resolved]
  - Oropharyngitis fungal [Not Recovered/Not Resolved]
  - Incorrect dose administered [Unknown]

NARRATIVE: CASE EVENT DATE: 2002
